FAERS Safety Report 5308495-6 (Version None)
Quarter: 2007Q2

REPORT INFORMATION
  Report Type: 
  Country: None (occurrence: None)
  Receive Date: 20070424
  Receipt Date: 20070424
  Transmission Date: 20071010
  Serious: Yes (Life-Threatening, Other)
  Sender: FDA-Public Use
  Company Number: None

PATIENT
  Sex: Female
  Weight: 66.6788 kg

DRUGS (2)
  1. FLUCONAZOLE [Suspect]
     Indication: FUNGAL INFECTION
     Dosage: 1 TABLET FIRST DAY   1 TABLET IN 3 DAYS
     Dates: start: 20070123, end: 20070126
  2. FLUCONAZOLE [Suspect]
     Indication: FUNGAL INFECTION
     Dosage: 1 TABLET FIRST DAY   1 TABLET IN 3 DAYS
     Dates: start: 20070126, end: 20070126

REACTIONS (19)
  - ALOPECIA [None]
  - AMNESIA [None]
  - BLISTER [None]
  - CHILLS [None]
  - COUGH [None]
  - DRUG HYPERSENSITIVITY [None]
  - HEADACHE [None]
  - HEART RATE INCREASED [None]
  - MALAISE [None]
  - PRURITUS GENERALISED [None]
  - PYREXIA [None]
  - RASH [None]
  - RASH PUSTULAR [None]
  - SKIN BURNING SENSATION [None]
  - SKIN EXFOLIATION [None]
  - SWELLING [None]
  - URTICARIA [None]
  - URTICARIA GENERALISED [None]
  - WEIGHT INCREASED [None]
